FAERS Safety Report 5364250-2 (Version None)
Quarter: 2007Q2

REPORT INFORMATION
  Report Type: 
  Country: None (occurrence: None)
  Receive Date: 20070620
  Receipt Date: 20070611
  Transmission Date: 20071010
  Serious: Yes (Hospitalization)
  Sender: FDA-Public Use
  Company Number: US-GENENTECH-240666

PATIENT
  Age: 58 Year
  Sex: Female

DRUGS (4)
  1. RITUXAN [Suspect]
     Indication: GRAFT VERSUS HOST DISEASE
     Dosage: 375 MG/M2, UNK
  2. ACYCLOVIR [Concomitant]
     Indication: PROPHYLAXIS
     Dosage: 400 MG, BID
     Route: 048
  3. FLUCONAZOLE [Concomitant]
     Indication: PROPHYLAXIS
     Dosage: 400 MG, QD
  4. MEPRON [Concomitant]
     Indication: PROPHYLAXIS

REACTIONS (4)
  - FEBRILE NEUTROPENIA [None]
  - NEUTROPENIA [None]
  - PANCYTOPENIA [None]
  - PSEUDOMONAS INFECTION [None]
